FAERS Safety Report 10764072 (Version 1)
Quarter: 2015Q1

REPORT INFORMATION
  Report Type: Spontaneous
  Country: FR (occurrence: FR)
  Receive Date: 20150204
  Receipt Date: 20150204
  Transmission Date: 20150721
  Serious: Yes (Hospitalization)
  Sender: FDA-Public Use
  Company Number: FR-SA-2015SA010860

PATIENT
  Age: 75 Year
  Sex: Female

DRUGS (7)
  1. EUPRESSYL [Concomitant]
     Active Substance: URAPIDIL
  2. LASILIX [Suspect]
     Active Substance: FUROSEMIDE
     Route: 048
     Dates: start: 201412, end: 20150106
  3. TENORDATE [Concomitant]
     Active Substance: ATENOLOL\NIFEDIPINE
  4. MODOPAR [Concomitant]
     Active Substance: BENSERAZIDE HYDROCHLORIDE\LEVODOPA
  5. TRINITRINE [Concomitant]
     Active Substance: NITROGLYCERIN
  6. CRESTOR [Concomitant]
     Active Substance: ROSUVASTATIN CALCIUM
  7. LYSANXIA [Concomitant]
     Active Substance: PRAZEPAM

REACTIONS (2)
  - Confusional state [Recovered/Resolved]
  - Hyponatraemia [Recovered/Resolved]

NARRATIVE: CASE EVENT DATE: 20150106
